FAERS Safety Report 15109552 (Version 1)
Quarter: 2018Q3

REPORT INFORMATION
  Report Type: Report from Study
  Country: IT (occurrence: IT)
  Receive Date: 20180705
  Receipt Date: 20180705
  Transmission Date: 20181010
  Serious: Yes (Other)
  Sender: FDA-Public Use
  Company Number: IT-TEVA-2018-IT-918595

PATIENT
  Age: 90 Year
  Sex: Female

DRUGS (4)
  1. ELOPRAM [Concomitant]
     Route: 065
  2. LEVOFLOXACINA TEVA 500 MG COMPRESSE RIVESTITE CON FILM [Suspect]
     Active Substance: LEVOFLOXACIN
     Indication: BRONCHITIS
     Dosage: 500 MILLIGRAM DAILY;
     Route: 048
  3. CARTEOL [Concomitant]
     Active Substance: CARTEOLOL
     Route: 065
  4. DELAPRIDE 30 MG + 2,5 MG COMPRESSE [Suspect]
     Active Substance: DELAPRIL HYDROCHLORIDE\INDAPAMIDE
     Indication: HYPERTENSION
     Route: 048
     Dates: start: 20180413, end: 20180415

REACTIONS (1)
  - Macroglossia [Recovering/Resolving]

NARRATIVE: CASE EVENT DATE: 20180420
